FAERS Safety Report 8520731-1 (Version None)
Quarter: 2012Q3

REPORT INFORMATION
  Report Type: 
  Country: None (occurrence: None)
  Receive Date: 20120719
  Receipt Date: 20120713
  Transmission Date: 20120928
  Serious: Yes (Other)
  Sender: FDA-Public Use
  Company Number: US-PFIZER INC-2012169757

PATIENT
  Sex: Female
  Weight: 66.21 kg

DRUGS (8)
  1. LIPITOR [Suspect]
     Indication: BLOOD TRIGLYCERIDES INCREASED
  2. NEXIUM [Concomitant]
  3. LEVOTHYROXINE [Concomitant]
     Indication: THYROID DISORDER
     Dosage: 100 MCG DAILY
  4. ISOSORBIDE [Concomitant]
     Indication: CARDIAC DISORDER
     Dosage: 90 MG, DAILY
     Route: 048
  5. LIPITOR [Suspect]
     Indication: BLOOD CHOLESTEROL INCREASED
     Dosage: 50 MG, DAILY
  6. ASPIRIN [Suspect]
     Indication: CARDIAC FAILURE CONGESTIVE
     Dosage: 81 MG, DAILY
     Route: 048
     Dates: start: 19970101
  7. ASPIRIN [Suspect]
     Indication: MYOCARDIAL INFARCTION
  8. NEXIUM [Concomitant]
     Indication: GASTROOESOPHAGEAL REFLUX DISEASE
     Dosage: 40 MG, DAILY

REACTIONS (2)
  - MYOCARDIAL INFARCTION [None]
  - STRIDOR [None]
